FAERS Safety Report 17762722 (Version 1)
Quarter: 2020Q2

REPORT INFORMATION
  Report Type: Spontaneous
  Country: US (occurrence: US)
  Receive Date: 20200508
  Receipt Date: 20200508
  Transmission Date: 20200714
  Serious: No
  Sender: FDA-Public Use
  Company Number: US-ELI_LILLY_AND_COMPANY-US202005002161

PATIENT

DRUGS (1)
  1. ZYPREXA [Suspect]
     Active Substance: OLANZAPINE
     Indication: PRODUCT USED FOR UNKNOWN INDICATION
     Dosage: 20 MG, UNKNOWN
     Route: 065

REACTIONS (12)
  - Dyspnoea [Unknown]
  - Hunger [Unknown]
  - Fatigue [Unknown]
  - Somnolence [Unknown]
  - Vision blurred [Unknown]
  - Headache [Unknown]
  - Confusional state [Unknown]
  - Amnesia [Unknown]
  - Weight increased [Unknown]
  - Breast enlargement [Unknown]
  - Throat tightness [Unknown]
  - Constipation [Unknown]
